FAERS Safety Report 4660284-1 (Version None)
Quarter: 2005Q2

REPORT INFORMATION
  Report Type: 
  Country: None (occurrence: None)
  Receive Date: 20050511
  Receipt Date: 20050511
  Transmission Date: 20051028
  Serious: Yes (Hospitalization)
  Sender: FDA-Public Use
  Company Number: None

PATIENT
  Age: 78 Year
  Weight: 69.9447 kg

DRUGS (10)
  1. DIGOXIN [Suspect]
     Indication: CARDIAC FAILURE CONGESTIVE
     Dosage: 125 MG PO QD
     Route: 048
  2. QUINIDINE GLUCONATE [Suspect]
     Indication: ARRHYTHMIA
     Dosage: 324 MG (1.5 TABS) BID
  3. LIPITOR [Concomitant]
  4. LASIX [Concomitant]
  5. OMEPRAZOLE [Concomitant]
  6. ALPRAZOLAM [Concomitant]
  7. PLAVIX [Concomitant]
  8. SPIRONOLACTONE [Concomitant]
  9. COMBIVENT [Concomitant]
  10. COUMADIN [Concomitant]

REACTIONS (5)
  - BLOOD POTASSIUM DECREASED [None]
  - CARDIOACTIVE DRUG LEVEL INCREASED [None]
  - DRUG TOXICITY [None]
  - RENAL FAILURE [None]
  - SYNCOPE [None]
